FAERS Safety Report 15093063 (Version 3)
Quarter: 2018Q4

REPORT INFORMATION
  Report Type: Spontaneous
  Country: IT (occurrence: IT)
  Receive Date: 20180629
  Receipt Date: 20181005
  Transmission Date: 20190204
  Serious: Yes (Other)
  Sender: FDA-Public Use
  Company Number: IT-TEVA-2018-IT-916593

PATIENT
  Age: 19 Year
  Sex: Female

DRUGS (28)
  1. PREDNISONE. [Suspect]
     Active Substance: PREDNISONE
     Indication: ACUTE LYMPHOCYTIC LEUKAEMIA
     Dosage: 20 MG/M2 2XDAY (Q12 H),  CYCLIC
     Route: 048
  2. LENOGRASTIM [Suspect]
     Active Substance: LENOGRASTIM
     Dosage: 5 UG/KG DAILY, CYCLIC (CYCLE 3)
     Route: 058
  3. DEXAMETHASONE SODIUM PHOSPHATE. [Suspect]
     Active Substance: DEXAMETHASONE SODIUM PHOSPHATE
     Dosage: 5 MG/M2 2XDAY, CYCLIC; DAY 1-5 (CYCLE 2)
     Route: 042
  4. THIOTEPA. [Suspect]
     Active Substance: THIOTEPA
     Indication: ACUTE LYMPHOCYTIC LEUKAEMIA
     Dosage: 5MG/KG DAY1-2
     Route: 065
     Dates: start: 20150904
  5. BUSULFAN. [Suspect]
     Active Substance: BUSULFAN
     Indication: ACUTE LYMPHOCYTIC LEUKAEMIA
     Dosage: 9.6 MG/KG, UNK
     Route: 042
     Dates: start: 20150904
  6. INOTUZUMAB OZOGAMICIN [Concomitant]
     Active Substance: INOTUZUMAB OZOGAMICIN
     Route: 065
  7. FOLINIC ACID [Suspect]
     Active Substance: LEUCOVORIN
     Indication: ACUTE LYMPHOCYTIC LEUKAEMIA
     Route: 065
  8. CYTARABINE. [Suspect]
     Active Substance: CYTARABINE
     Dosage: 2000 MG/M2 2XDAY, CYCLIC (Q12H) CYCLE 7
     Route: 042
  9. IDARUBICIN [Suspect]
     Active Substance: IDARUBICIN
     Indication: ACUTE LYMPHOCYTIC LEUKAEMIA
     Dosage: 12 MG/M2/D, CYCLIC; DAY 1,2 (CYCLE1 AND 2)
     Route: 042
  10. MERCAPTOPURINE. [Suspect]
     Active Substance: MERCAPTOPURINE
     Indication: ACUTE LYMPHOCYTIC LEUKAEMIA
     Dosage: 60 MG/M2 DAILY, CYCLIC, DAY 1-14
     Route: 048
  11. FILGRASTIM [Suspect]
     Active Substance: FILGRASTIM
     Indication: ACUTE LYMPHOCYTIC LEUKAEMIA
     Dosage: 5 UG/KG DAILY, CYCLIC, 5 TO ANC }1.0
     Route: 058
  12. LENOGRASTIM [Suspect]
     Active Substance: LENOGRASTIM
     Dosage: 10 UG/M2,DAILY, CYCLIC (CYCLE 7) , 8 TO HARVEST/ANC GREATER THAN 1.0
     Route: 065
  13. DEXAMETHASONE SODIUM PHOSPHATE. [Suspect]
     Active Substance: DEXAMETHASONE SODIUM PHOSPHATE
     Dosage: 5 MG/M2 2XDAY, CYCLIC; DAY 1-5 (CYCLE 2)
     Route: 048
  14. BLINCYTO [Suspect]
     Active Substance: BLINATUMOMAB
     Indication: ACUTE LYMPHOCYTIC LEUKAEMIA
     Dosage: ONLY ONE CYCLE
     Route: 065
     Dates: start: 20161220
  15. BLINCYTO [Suspect]
     Active Substance: BLINATUMOMAB
     Dosage: UNK
     Route: 042
     Dates: start: 20161220
  16. VINCRISTINE SULFATE. [Suspect]
     Active Substance: VINCRISTINE SULFATE
     Indication: ACUTE LYMPHOCYTIC LEUKAEMIA
     Dosage: 1.4 MG/M2, CYCLIC (MAX 2 MG), INFUSION TIME:PUSH
     Route: 042
  17. LENOGRASTIM [Suspect]
     Active Substance: LENOGRASTIM
     Indication: ACUTE LYMPHOCYTIC LEUKAEMIA
     Dosage: 5 UG/KG DAILY, CYCLIC, 5 TO ANC } 1.0
     Route: 058
  18. CYTARABINE. [Suspect]
     Active Substance: CYTARABINE
     Dosage: 75 MG/M2 DAILY, CYCLIC (CYCLE 2), DAY 2-5, 9-12
     Route: 058
  19. CYCLOPHOSPHAMIDE. [Suspect]
     Active Substance: CYCLOPHOSPHAMIDE
     Dosage: 1000 MG/M2 DAILY, CYCLIC (CYCLE 2)
     Route: 042
  20. METHOTREXATE. [Suspect]
     Active Substance: METHOTREXATE
     Indication: ACUTE LYMPHOCYTIC LEUKAEMIA
     Dosage: 5000 MG/M2, CYCLIC
     Route: 042
  21. CYTARABINE. [Suspect]
     Active Substance: CYTARABINE
     Indication: ACUTE LYMPHOCYTIC LEUKAEMIA
     Dosage: 75 MG/M2 DAILY, CYCLIC (CYCLE 2)
     Route: 042
  22. FILGRASTIM [Suspect]
     Active Substance: FILGRASTIM
     Dosage: 10 UG/KG, (CYCLE 7), 8 TO HARVEST/ANC GREATER THAN 1.0
     Route: 065
  23. FILGRASTIM [Suspect]
     Active Substance: FILGRASTIM
     Dosage: 5 UG/KG DAILY, CYCLIC, ANC{0.5 TO }1.0 (CYCLE 2)
     Route: 058
  24. FLUDARABINE [Suspect]
     Active Substance: FLUDARABINE PHOSPHATE
     Indication: ACUTE LYMPHOCYTIC LEUKAEMIA
     Dosage: 50MG/M2 DAY 3-4-5
     Route: 065
     Dates: start: 20150904
  25. DEXAMETHASONE SODIUM PHOSPHATE. [Suspect]
     Active Substance: DEXAMETHASONE SODIUM PHOSPHATE
     Indication: ACUTE LYMPHOCYTIC LEUKAEMIA
     Dosage: 5 MG/M2 2XDAY, CYCLIC; DAY 1-5, 15-19
     Route: 042
  26. FILGRASTIM [Suspect]
     Active Substance: FILGRASTIM
     Dosage: 5 UG/KG DAILY, CYCLIC (CYCLE 3)
     Route: 058
  27. LENOGRASTIM [Suspect]
     Active Substance: LENOGRASTIM
     Dosage: 5 UG/KG DAILY, CYCLIC, ANC{0.5 TO }1.0 (CYCLE 2)
     Route: 058
  28. CYCLOPHOSPHAMIDE. [Suspect]
     Active Substance: CYCLOPHOSPHAMIDE
     Indication: ACUTE LYMPHOCYTIC LEUKAEMIA
     Dosage: 300 MG/M2 DAILY, CYCLIC, DAY -3 TO-1
     Route: 042

REACTIONS (4)
  - Neurotoxicity [Recovered/Resolved]
  - Acute lymphocytic leukaemia recurrent [Unknown]
  - Seizure [Recovered/Resolved]
  - Neoplasm recurrence [Unknown]
